FAERS Safety Report 19514334 (Version 1)
Quarter: 2021Q3

REPORT INFORMATION
  Report Type: Spontaneous
  Country: US (occurrence: US)
  Receive Date: 20210709
  Receipt Date: 20210709
  Transmission Date: 20211014
  Serious: Yes (Other)
  Sender: FDA-Public Use
  Company Number: NVSC2021US116221

PATIENT
  Sex: Male

DRUGS (2)
  1. BETOPTIC S [Suspect]
     Active Substance: BETAXOLOL HYDROCHLORIDE
     Indication: PRODUCT USED FOR UNKNOWN INDICATION
     Dosage: 0.25 %
     Route: 065
  2. BETOPTIC S [Suspect]
     Active Substance: BETAXOLOL HYDROCHLORIDE
     Dosage: 1 DRP, BID (RIGHT EY)
     Route: 065

REACTIONS (3)
  - Product container issue [Unknown]
  - Liquid product physical issue [Unknown]
  - Blindness unilateral [Unknown]
